FAERS Safety Report 25953215 (Version 1)
Quarter: 2025Q4

REPORT INFORMATION
  Report Type: Spontaneous
  Country: IN (occurrence: IN)
  Receive Date: 20251023
  Receipt Date: 20251023
  Transmission Date: 20260118
  Serious: Yes (Other)
  Sender: COSETTE PHARMACEUTICALS INC
  Company Number: IN-MLMSERVICE-20241122-PI268525-00338-1

PATIENT
  Age: 52 Year
  Sex: Male

DRUGS (2)
  1. AMBIEN [Suspect]
     Active Substance: ZOLPIDEM TARTRATE
     Indication: Sleep disorder
     Dosage: BEFORE GOING TO SLEEP
     Route: 048
  2. SERTRALINE [Suspect]
     Active Substance: SERTRALINE HYDROCHLORIDE
     Indication: Depression
     Dosage: 50 MG QD
     Route: 065

REACTIONS (9)
  - Psychotic disorder [Recovered/Resolved]
  - Inappropriate affect [Recovered/Resolved]
  - Logorrhoea [Recovered/Resolved]
  - Hallucination, visual [Recovered/Resolved]
  - Amnesia [Recovered/Resolved]
  - Disinhibition [Recovered/Resolved]
  - Agitation [Recovered/Resolved]
  - Abnormal behaviour [Recovered/Resolved]
  - Drug interaction [Recovered/Resolved]
